FAERS Safety Report 11339781 (Version 1)
Quarter: 2015Q3

REPORT INFORMATION
  Report Type: Spontaneous
  Country: US (occurrence: None)
  Receive Date: 20150804
  Receipt Date: 20150804
  Transmission Date: 20151125
  Serious: Yes (Hospitalization)
  Sender: FDA-Public Use
  Company Number: None

PATIENT
  Age: 35 Year
  Sex: Female
  Weight: 61.24 kg

DRUGS (1)
  1. MIRENA [Suspect]
     Active Substance: LEVONORGESTREL

REACTIONS (5)
  - Complication of device removal [None]
  - Device dislocation [None]
  - Abdominal pain lower [None]
  - Paraesthesia [None]
  - Uterine cervical laceration [None]

NARRATIVE: CASE EVENT DATE: 20141118
